FAERS Safety Report 23775223 (Version 2)
Quarter: 2024Q4

REPORT INFORMATION
  Report Type: Spontaneous
  Country: US (occurrence: US)
  Receive Date: 20240423
  Receipt Date: 20241109
  Transmission Date: 20250115
  Serious: Yes (Other)
  Sender: ABBVIE
  Company Number: US-OTSUKA-2024_008659

PATIENT
  Age: 24 Year
  Sex: Male
  Weight: 66 kg

DRUGS (3)
  1. LEXAPRO [Suspect]
     Active Substance: ESCITALOPRAM OXALATE
     Indication: Depression
     Dosage: 10 MG, QD
     Route: 048
  2. LEXAPRO [Suspect]
     Active Substance: ESCITALOPRAM OXALATE
     Indication: Depression
     Dosage: 10 MG, BID
     Route: 048
  3. REXULTI [Suspect]
     Active Substance: BREXPIPRAZOLE
     Indication: Adjuvant therapy
     Dosage: 0.5 MG, QD
     Route: 065
     Dates: start: 20230815, end: 20231125

REACTIONS (8)
  - Hyperprolactinaemia [Recovered/Resolved]
  - Inappropriate schedule of product administration [Unknown]
  - Anhedonia [Recovered/Resolved]
  - Blunted affect [Unknown]
  - Emotional poverty [Recovered/Resolved]
  - Erectile dysfunction [Not Recovered/Not Resolved]
  - Sexual dysfunction [Not Recovered/Not Resolved]
  - Hypogonadism [Not Recovered/Not Resolved]

NARRATIVE: CASE EVENT DATE: 20230801
